FAERS Safety Report 4603556-9 (Version None)
Quarter: 2005Q1

REPORT INFORMATION
  Report Type: 
  Country: None (occurrence: None)
  Receive Date: 20050310
  Receipt Date: 20050228
  Transmission Date: 20050727
  Serious: Yes (Other)
  Sender: FDA-Public Use
  Company Number: JP-JNJFOC-20041205191

PATIENT
  Sex: Male

DRUGS (13)
  1. REMICADE [Suspect]
     Route: 042
  2. REMICADE [Suspect]
     Route: 042
  3. REMICADE [Suspect]
     Indication: RHEUMATOID ARTHRITIS
     Route: 042
  4. ETODOLAC [Concomitant]
     Indication: RHEUMATOID ARTHRITIS
     Route: 049
  5. FOLIC ACID [Concomitant]
     Route: 049
  6. IRSOGLADINE MALEATE [Concomitant]
     Route: 049
  7. IRSOGLADINE MALEATE [Concomitant]
     Route: 049
  8. METHOTREXATE [Concomitant]
     Route: 049
  9. METHOTREXATE [Concomitant]
     Route: 049
  10. METHOTREXATE [Concomitant]
     Route: 049
  11. METHOTREXATE [Concomitant]
     Indication: RHEUMATOID ARTHRITIS
     Route: 049
  12. PREDNISOLONE [Concomitant]
     Route: 049
  13. URSODESOXYCHOLIC ACID [Concomitant]
     Route: 049

REACTIONS (1)
  - MYCOBACTERIUM AVIUM COMPLEX INFECTION [None]
